FAERS Safety Report 15709069 (Version 1)
Quarter: 2018Q4

REPORT INFORMATION
  Report Type: Spontaneous
  Country: DE (occurrence: DE)
  Receive Date: 20181211
  Receipt Date: 20181211
  Transmission Date: 20190205
  Serious: Yes (Death, Life-Threatening, Hospitalization, Other)
  Sender: FDA-Public Use
  Company Number: DE-TEVA-195843ISR

PATIENT
  Age: 26 Year
  Sex: Male

DRUGS (2)
  1. CARBAMAZEPINE. [Suspect]
     Active Substance: CARBAMAZEPINE
     Indication: BIPOLAR DISORDER
     Route: 065
  2. HEPARIN [Suspect]
     Active Substance: HEPARIN SODIUM
     Indication: ANTICOAGULANT THERAPY
     Route: 065

REACTIONS (7)
  - Heparin-induced thrombocytopenia [Fatal]
  - Toxic epidermal necrolysis [Fatal]
  - Peripheral artery occlusion [Fatal]
  - Iliac artery occlusion [Fatal]
  - Right ventricular failure [Fatal]
  - Pulmonary embolism [Fatal]
  - Renal failure [Fatal]
